FAERS Safety Report 18501466 (Version 5)
Quarter: 2021Q2

REPORT INFORMATION
  Report Type: Report from Study
  Country: GB (occurrence: GB)
  Receive Date: 20201113
  Receipt Date: 20210429
  Transmission Date: 20210717
  Serious: Yes (Hospitalization)
  Sender: FDA-Public Use
  Company Number: GB-ROCHE-2692995

PATIENT
  Age: 67 Year
  Sex: Female
  Weight: 77 kg

DRUGS (19)
  1. LEVOTHYROXINE. [Concomitant]
     Active Substance: LEVOTHYROXINE
     Indication: HYPOTHYROIDISM
     Route: 048
     Dates: start: 20160906, end: 20210404
  2. LEVOTHYROXINE. [Concomitant]
     Active Substance: LEVOTHYROXINE
     Route: 048
     Dates: end: 20210407
  3. IBUPROFEN. [Concomitant]
     Active Substance: IBUPROFEN
     Indication: MIGRAINE
  4. IPATASERTIB. [Suspect]
     Active Substance: IPATASERTIB
     Indication: HER2 NEGATIVE BREAST CANCER
     Dosage: ONCE A DAY ON DAYS 1?21 OF EACH 28?DAY CYCLE UNTIL DISEASE PROGRESSION, INTOLERABLE TOXICITY, ELECTI
     Route: 048
     Dates: start: 20191231
  5. AMITRIPTYLINE [Concomitant]
     Active Substance: AMITRIPTYLINE
     Indication: MIGRAINE
     Route: 048
     Dates: start: 20200124
  6. CYCLIZINE [Concomitant]
     Active Substance: CYCLIZINE
     Indication: NAUSEA
     Route: 042
     Dates: start: 20200113, end: 20201027
  7. ATORVASTATIN [Concomitant]
     Active Substance: ATORVASTATIN
     Route: 048
     Dates: start: 20160906
  8. PACLITAXEL. [Suspect]
     Active Substance: PACLITAXEL
     Indication: HER2 NEGATIVE BREAST CANCER
     Dosage: ON DAYS 1, 8, AND 15 OF EACH 28?DAY CYCLE UNTIL DISEASE PROGRESSION, INTOLERABLE TOXICITY, ELECTIVE
     Route: 042
     Dates: start: 20191231
  9. CANDESARTAN. [Concomitant]
     Active Substance: CANDESARTAN
     Indication: HYPERTENSION
     Route: 048
     Dates: start: 20160906
  10. ONDANSETRON [Concomitant]
     Active Substance: ONDANSETRON
     Indication: NAUSEA
     Route: 048
     Dates: start: 20200317
  11. DENOSUMAB [Concomitant]
     Active Substance: DENOSUMAB
     Indication: METASTASES TO BONE
     Route: 058
     Dates: start: 20200310
  12. PREDNISOLONE. [Concomitant]
     Active Substance: PREDNISOLONE
     Route: 048
     Dates: start: 20201012, end: 20201018
  13. ATEZOLIZUMAB. [Suspect]
     Active Substance: ATEZOLIZUMAB
     Indication: HER2 NEGATIVE BREAST CANCER
     Dosage: ON 21/SEP/2020 AT 13:55, SHE RECEIVED THE MOST RECENT DOSE OF ATEZOLIZUMAB (840 MG) PRIOR TO SERIOUS
     Route: 041
     Dates: start: 20191231
  14. PREDNISOLONE. [Concomitant]
     Active Substance: PREDNISOLONE
     Indication: RENAL IMPAIRMENT
     Route: 048
     Dates: start: 20201006, end: 20201011
  15. CALCEOS [Concomitant]
     Active Substance: CALCIUM CARBONATE\CHOLECALCIFEROL
     Route: 048
     Dates: start: 20200302
  16. LOPERAMIDE [Suspect]
     Active Substance: LOPERAMIDE
     Indication: HER2 NEGATIVE BREAST CANCER
     Dosage: ON 04/JAN/2020, IT WAS HER MOST RECENT DOSE PRIOR TO SERIOUS ADVERSE EVENT ONSET.?ON AN UNSPECIFIED
     Route: 048
     Dates: start: 20200104
  17. INDIVINA [Concomitant]
     Active Substance: ESTRADIOL VALERATE\MEDROXYPROGESTERONE ACETATE
     Indication: MENOPAUSE
     Route: 048
     Dates: start: 20170911
  18. OMEPRAZOLE. [Concomitant]
     Active Substance: OMEPRAZOLE
     Indication: DYSPEPSIA
     Route: 048
     Dates: start: 20200114
  19. PARACETAMOL [Concomitant]
     Active Substance: ACETAMINOPHEN
     Indication: ARTHRALGIA
     Route: 048
     Dates: start: 20191205

REACTIONS (1)
  - Acute kidney injury [Recovered/Resolved]

NARRATIVE: CASE EVENT DATE: 20201005
